FAERS Safety Report 17398984 (Version 2)
Quarter: 2020Q1

REPORT INFORMATION
  Report Type: Report from Study
  Country: US (occurrence: US)
  Receive Date: 20200210
  Receipt Date: 20200219
  Transmission Date: 20200409
  Serious: Yes (Hospitalization)
  Sender: FDA-Public Use
  Company Number: US-ACTELION-A-NJ2018-181803

PATIENT
  Sex: Female
  Weight: 67.12 kg

DRUGS (3)
  1. ADEMPAS [Suspect]
     Active Substance: RIOCIGUAT
     Indication: PRODUCT USED FOR UNKNOWN INDICATION
     Dosage: 2 MG, TID
     Route: 048
  2. DILTIAZEM. [Concomitant]
     Active Substance: DILTIAZEM
  3. OPSUMIT [Suspect]
     Active Substance: MACITENTAN
     Indication: PULMONARY ARTERIAL HYPERTENSION
     Dosage: 10 MG, QD
     Route: 048

REACTIONS (15)
  - Oedema [Not Recovered/Not Resolved]
  - Constipation [Recovering/Resolving]
  - Oxygen therapy [Unknown]
  - Fatigue [Not Recovered/Not Resolved]
  - Oedema peripheral [Recovering/Resolving]
  - Abdominal discomfort [Unknown]
  - Dyspnoea [Unknown]
  - Peripheral swelling [Unknown]
  - Dyspepsia [Unknown]
  - Product dose omission [Unknown]
  - Bone contusion [Unknown]
  - Fall [Unknown]
  - Hypoacusis [Unknown]
  - Hospitalisation [Unknown]
  - Productive cough [Unknown]
